FAERS Safety Report 13387254 (Version 2)
Quarter: 2017Q2

REPORT INFORMATION
  Report Type: Spontaneous
  Country: NL (occurrence: NL)
  Receive Date: 20170330
  Receipt Date: 20170427
  Transmission Date: 20170830
  Serious: Yes (Hospitalization)
  Sender: FDA-Public Use
  Company Number: NL-ASTELLAS-2017US011788

PATIENT
  Sex: Female

DRUGS (2)
  1. PROGRAFT [Suspect]
     Active Substance: TACROLIMUS
     Indication: IMMUNOSUPPRESSION
     Dosage: UNK UNK, UNKNOWN FREQ.
     Route: 048
  2. PROGRAF [Suspect]
     Active Substance: TACROLIMUS\TACROLIMUS ANHYDROUS
     Indication: IMMUNOSUPPRESSION
     Dosage: NO STABLE DOSE, UNKNOWN FREQ.
     Route: 042

REACTIONS (4)
  - Immunosuppressant drug level increased [Unknown]
  - Pruritus [Unknown]
  - Pharyngeal oedema [Unknown]
  - Vomiting [Unknown]
